FAERS Safety Report 13090794 (Version 1)
Quarter: 2017Q1

REPORT INFORMATION
  Report Type: Spontaneous
  Country: SE (occurrence: SE)
  Receive Date: 20170106
  Receipt Date: 20170106
  Transmission Date: 20170428
  Serious: Yes (Hospitalization)
  Sender: FDA-Public Use
  Company Number: SE-009507513-1701SWE001941

PATIENT
  Age: 85 Year
  Sex: Female

DRUGS (1)
  1. ALENDRONATE SODIUM. [Suspect]
     Active Substance: ALENDRONATE SODIUM

REACTIONS (2)
  - Abdominal pain [Recovered/Resolved]
  - Dyspnoea [Recovered/Resolved]
